FAERS Safety Report 8306999-5 (Version None)
Quarter: 2012Q2

REPORT INFORMATION
  Report Type: 
  Country: None (occurrence: None)
  Receive Date: 20120424
  Receipt Date: 20120412
  Transmission Date: 20120825
  Serious: No
  Sender: FDA-Public Use
  Company Number: RS-JNJFOC-20120304639

PATIENT

DRUGS (1)
  1. INFLIXIMAB, RECOMBINANT [Suspect]
     Indication: INFLAMMATORY BOWEL DISEASE
     Dosage: 0,2,6 WEEKS AND THEN EVERY 8 WEEKS
     Route: 042

REACTIONS (4)
  - SKIN REACTION [None]
  - DRUG INTOLERANCE [None]
  - DRUG INEFFECTIVE [None]
  - INFECTION [None]
